FAERS Safety Report 13837648 (Version 1)
Quarter: 2017Q3

REPORT INFORMATION
  Report Type: Spontaneous
  Country: GB (occurrence: GB)
  Receive Date: 20170806
  Receipt Date: 20170806
  Transmission Date: 20171127
  Serious: Yes (Hospitalization)
  Sender: FDA-Public Use
  Company Number: GB-DEXPHARM-20171089

PATIENT
  Age: 47 Year
  Sex: Female
  Weight: 76 kg

DRUGS (10)
  1. FUCIDIN H [Concomitant]
     Dosage: DAILY DOSE: 3 DF DOSAGE FORM EVERY DAYS
     Dates: start: 20170125
  2. LINAGLIPTIN [Suspect]
     Active Substance: LINAGLIPTIN
     Indication: TYPE 2 DIABETES MELLITUS
     Dosage: DAILY DOSE: 5 MG MILLGRAM(S) EVERY DAYS
  3. PROPRANOLOL [Concomitant]
     Active Substance: PROPRANOLOL HYDROCHLORIDE
     Dosage: DAILY DOSE: 120 MG MILLGRAM(S) EVERY DAYS
  4. OMEPRAZOLE. [Suspect]
     Active Substance: OMEPRAZOLE
     Indication: MENORRHAGIA
     Dates: start: 20170131
  5. FLEXITOL HEEL BALM [Concomitant]
     Dosage: AS DIRECTED
     Dates: start: 20170125
  6. MEFENAMIC ACID. [Suspect]
     Active Substance: MEFENAMIC ACID
     Indication: MENORRHAGIA
     Dosage: DAILY DOSE: 1500 MG MILLGRAM(S) EVERY DAYS
     Route: 048
     Dates: start: 20170131, end: 20170219
  7. DAPAGLIFLOZIN. [Suspect]
     Active Substance: DAPAGLIFLOZIN
     Indication: TYPE 2 DIABETES MELLITUS
     Dosage: DAILY DOSE: 10 MG MILLGRAM(S) EVERY DAYS
     Dates: start: 20170125
  8. RANITIDINE. [Concomitant]
     Active Substance: RANITIDINE
     Dosage: DAILY DOSE: 150 MG MILLGRAM(S) EVERY DAYS
  9. CITALOPRAM [Concomitant]
     Active Substance: CITALOPRAM HYDROBROMIDE
     Dosage: DAILY DOSE: 40 MG MILLGRAM(S) EVERY DAYS
  10. CARBIMAZOLE [Concomitant]
     Active Substance: CARBIMAZOLE
     Dosage: DAILY DOSE: 5 MG MILLGRAM(S) EVERY DAYS

REACTIONS (2)
  - Drug interaction [Unknown]
  - Tubulointerstitial nephritis [Recovering/Resolving]

NARRATIVE: CASE EVENT DATE: 20170219
